FAERS Safety Report 19453271 (Version 4)
Quarter: 2024Q1

REPORT INFORMATION
  Report Type: Spontaneous
  Country: US (occurrence: US)
  Receive Date: 20210623
  Receipt Date: 20240307
  Transmission Date: 20240410
  Serious: No
  Sender: FDA-Public Use
  Company Number: US-PFIZER INC-2021750818

PATIENT
  Age: 79 Year
  Sex: Female

DRUGS (1)
  1. XELJANZ XR [Suspect]
     Active Substance: TOFACITINIB CITRATE
     Dosage: 11 MG, DAILY

REACTIONS (5)
  - Pain [Not Recovered/Not Resolved]
  - Osteoporosis [Unknown]
  - Dyspnoea [Unknown]
  - Stress [Unknown]
  - Dizziness [Unknown]

NARRATIVE: CASE EVENT DATE: 20240301
